FAERS Safety Report 8418950-8 (Version None)
Quarter: 2012Q2

REPORT INFORMATION
  Report Type: 
  Country: None (occurrence: None)
  Receive Date: 20120607
  Receipt Date: 20120531
  Transmission Date: 20120825
  Serious: Yes (Hospitalization, Other)
  Sender: FDA-Public Use
  Company Number: PHFR2012GB003303

PATIENT
  Sex: Male

DRUGS (2)
  1. CLOZARIL [Suspect]
     Indication: SCHIZOPHRENIA
     Dosage: UNK UKN, UNK
     Route: 048
     Dates: start: 20031020
  2. CLOZARIL [Suspect]
     Dosage: UNK UKN, UNK
     Dates: start: 20120530

REACTIONS (2)
  - CONSTIPATION [None]
  - ABDOMINAL PAIN [None]
